FAERS Safety Report 6251645-8 (Version None)
Quarter: 2009Q2

REPORT INFORMATION
  Report Type: 
  Country: None (occurrence: None)
  Receive Date: 20090630
  Receipt Date: 20090625
  Transmission Date: 20091009
  Serious: Yes (Other)
  Sender: FDA-Public Use
  Company Number: NL-PFIZER INC-2009226375

PATIENT
  Age: 73 Year

DRUGS (4)
  1. TOVIAZ [Suspect]
     Indication: URGE INCONTINENCE
     Dosage: 4 MG, 1X/DAY
     Route: 048
     Dates: start: 20090605, end: 20090610
  2. ENALAPRIL [Concomitant]
     Dosage: 20 MG, 2X/DAY
  3. FLUTICASONE [Concomitant]
     Dosage: UNK
  4. PANTOZOL [Concomitant]
     Dosage: 40 MG, 2X/DAY

REACTIONS (2)
  - CYSTITIS [None]
  - DEMENTIA [None]
